FAERS Safety Report 25929582 (Version 1)
Quarter: 2025Q4

REPORT INFORMATION
  Report Type: Spontaneous
  Country: CN (occurrence: CN)
  Receive Date: 20251016
  Receipt Date: 20251016
  Transmission Date: 20260118
  Serious: Yes (Hospitalization, Other)
  Sender: BAXTER
  Company Number: None

PATIENT
  Age: 56 Year
  Sex: Female

DRUGS (3)
  1. CYCLOPHOSPHAMIDE [Suspect]
     Active Substance: CYCLOPHOSPHAMIDE
     Indication: Prophylaxis against graft versus host disease
     Dosage: 2280 MG, QD (D3-4)
     Route: 041
     Dates: start: 20250908, end: 20250909
  2. BUSULFAN [Suspect]
     Active Substance: BUSULFAN
     Indication: Bone marrow conditioning regimen
     Dosage: 96 MG, BID
     Route: 058
     Dates: start: 20250830, end: 20250831
  3. MELPHALAN [Suspect]
     Active Substance: MELPHALAN
     Indication: Bone marrow conditioning regimen
     Dosage: UNK
     Route: 065
     Dates: start: 2025

REACTIONS (4)
  - Delirium [Unknown]
  - Venoocclusive liver disease [Unknown]
  - Blood bilirubin increased [Unknown]
  - Ascites [Unknown]

NARRATIVE: CASE EVENT DATE: 20250914
